FAERS Safety Report 23587904 (Version 4)
Quarter: 2025Q2

REPORT INFORMATION
  Report Type: Spontaneous
  Country: JP (occurrence: JP)
  Receive Date: 20240301
  Receipt Date: 20250625
  Transmission Date: 20250717
  Serious: Yes (Hospitalization)
  Sender: EISAI
  Company Number: JP-Eisai-202314568_LEN_P_1

PATIENT
  Age: 63 Year
  Sex: Female

DRUGS (6)
  1. LENVIMA [Suspect]
     Active Substance: LENVATINIB
     Indication: Follicular thyroid cancer
  2. LENVIMA [Suspect]
     Active Substance: LENVATINIB
  3. LENVIMA [Suspect]
     Active Substance: LENVATINIB
  4. LENVIMA [Suspect]
     Active Substance: LENVATINIB
     Dates: start: 20170626, end: 20190205
  5. LENVIMA [Suspect]
     Active Substance: LENVATINIB
     Dates: start: 20190206, end: 20190403
  6. LENVIMA [Suspect]
     Active Substance: LENVATINIB
     Dates: start: 20190411, end: 20200205

REACTIONS (5)
  - Acute kidney injury [Recovered/Resolved]
  - Oedema [Unknown]
  - Decreased appetite [Unknown]
  - Proteinuria [Recovered/Resolved]
  - Device breakage [Unknown]

NARRATIVE: CASE EVENT DATE: 20170609
